FAERS Safety Report 7505978-5 (Version None)
Quarter: 2011Q2

REPORT INFORMATION
  Report Type: 
  Country: None (occurrence: None)
  Receive Date: 20110526
  Receipt Date: 20110512
  Transmission Date: 20111010
  Serious: Yes (Other)
  Sender: FDA-Public Use
  Company Number: PHHY2010US42722

PATIENT
  Sex: Female

DRUGS (6)
  1. RECLAST [Suspect]
     Indication: OSTEOPOROSIS
     Dosage: 5 MG
     Route: 042
     Dates: start: 20100112
  2. NIFEDIPINE [Concomitant]
  3. GABAPENTIN [Concomitant]
  4. FISH OIL [Concomitant]
  5. SLEEPING PILLS [Concomitant]
  6. NEURONTIN [Concomitant]

REACTIONS (18)
  - OSTEONECROSIS OF JAW [None]
  - TOOTH FRACTURE [None]
  - INFLUENZA LIKE ILLNESS [None]
  - MALAISE [None]
  - LOOSE TOOTH [None]
  - BONE PAIN [None]
  - TRAUMATIC SHOCK [None]
  - DISCOMFORT [None]
  - JOINT SWELLING [None]
  - FATIGUE [None]
  - VOMITING [None]
  - NAUSEA [None]
  - TOOTH ABSCESS [None]
  - DIARRHOEA [None]
  - PAIN [None]
  - BLINDNESS TRANSIENT [None]
  - TRIGEMINAL NEURALGIA [None]
  - PAIN IN JAW [None]
